FAERS Safety Report 12999605 (Version 12)
Quarter: 2020Q3

REPORT INFORMATION
  Report Type: Report from Study
  Country: FR (occurrence: FR)
  Receive Date: 20161205
  Receipt Date: 20171229
  Transmission Date: 20201104
  Serious: Yes (Death, Life-Threatening, Hospitalization)
  Sender: FDA-Public Use
  Company Number: FR-JNJFOC-20161130326

PATIENT
  Age: 45 Year
  Sex: Female
  Weight: 67 kg

DRUGS (5)
  1. THALIDOMIDE [Suspect]
     Active Substance: THALIDOMIDE
     Indication: PLASMA CELL MYELOMA
     Route: 048
     Dates: start: 20151117, end: 20160809
  2. DEXAMETHASONE. [Suspect]
     Active Substance: DEXAMETHASONE
     Indication: PLASMA CELL MYELOMA
     Dosage: ?NOW JUST IN PREMEDICATION BEFORE DARATUMUMAB.?
     Route: 042
     Dates: start: 20151117, end: 20160916
  3. DARATUMUMAB [Suspect]
     Active Substance: DARATUMUMAB
     Indication: PLASMA CELL MYELOMA
     Route: 042
     Dates: start: 20160916, end: 20160916
  4. VELCADE [Suspect]
     Active Substance: BORTEZOMIB
     Indication: PLASMA CELL MYELOMA
     Route: 058
     Dates: start: 20151117, end: 20160722
  5. DARATUMUMAB [Suspect]
     Active Substance: DARATUMUMAB
     Route: 042

REACTIONS (4)
  - Febrile neutropenia [Not Recovered/Not Resolved]
  - Epstein-Barr virus infection reactivation [Recovered/Resolved]
  - Natural killer-cell lymphoblastic lymphoma [Fatal]
  - Haemophagocytic lymphohistiocytosis [Recovering/Resolving]

NARRATIVE: CASE EVENT DATE: 20161125
